FAERS Safety Report 7504456-7 (Version None)
Quarter: 2011Q2

REPORT INFORMATION
  Report Type: 
  Country: None (occurrence: None)
  Receive Date: 20110525
  Receipt Date: 20091114
  Transmission Date: 20111010
  Serious: Yes (Other)
  Sender: FDA-Public Use
  Company Number: US-BAYER-200939349NA

PATIENT
  Age: 52 Year
  Sex: Female
  Weight: 56 kg

DRUGS (23)
  1. AMOXICILLIN [Concomitant]
     Indication: PRODUCT USED FOR UNKNOWN INDICATION
     Dosage: UNK
     Route: 048
     Dates: start: 19890101, end: 20040101
  2. RED BLOOD CELLS [Concomitant]
     Dosage: 1 U, UNK
     Route: 042
     Dates: start: 20040516
  3. TRASYLOL [Suspect]
     Indication: HEART TRANSPLANT
     Dosage: 1 ML INITIAL (TEST) DOSE
     Route: 042
     Dates: start: 20040516, end: 20040516
  4. TRASYLOL [Suspect]
     Indication: PERICARDIAL REPAIR
     Dosage: 200 ML LOADING DOSE
     Route: 042
     Dates: start: 20040516, end: 20040516
  5. LASIX [Concomitant]
     Indication: PRODUCT USED FOR UNKNOWN INDICATION
     Dosage: UNK
     Route: 048
     Dates: end: 20040101
  6. VERSED [Concomitant]
     Indication: PRODUCT USED FOR UNKNOWN INDICATION
     Dosage: 8 MG, UNK
     Route: 042
     Dates: start: 20040516, end: 20040517
  7. DOBUTAMINE HYDROCHLORIDE [Concomitant]
     Indication: PRODUCT USED FOR UNKNOWN INDICATION
     Dosage: 5
     Route: 042
     Dates: start: 20040516, end: 20040517
  8. EPINEPHRINE [Concomitant]
     Indication: PRODUCT USED FOR UNKNOWN INDICATION
     Dosage: 0.4 MG, UNK
     Route: 042
     Dates: start: 20040516, end: 20040517
  9. VERAPAMIL [Concomitant]
     Indication: PRODUCT USED FOR UNKNOWN INDICATION
     Dosage: 120 MG, QD
     Route: 048
     Dates: start: 20030101, end: 20040101
  10. LANOXIN [Concomitant]
     Indication: PRODUCT USED FOR UNKNOWN INDICATION
     Dosage: 0.125 MG, QD
     Route: 048
     Dates: start: 20030101, end: 20040101
  11. TORSEMIDE [Concomitant]
     Indication: PRODUCT USED FOR UNKNOWN INDICATION
     Dosage: 10 ML/HOUR
     Route: 042
     Dates: start: 20040516, end: 20040517
  12. HEPARIN [Concomitant]
     Indication: PRODUCT USED FOR UNKNOWN INDICATION
     Dosage: 29000 U, UNK
     Route: 042
     Dates: start: 20040516, end: 20040517
  13. TRASYLOL [Suspect]
     Dosage: 50 ML/HOUR INFUSION
     Route: 042
     Dates: start: 20040516, end: 20040516
  14. TYLENOL ES [Concomitant]
     Indication: PRODUCT USED FOR UNKNOWN INDICATION
     Dosage: UNK
     Route: 048
     Dates: start: 19890101, end: 20040101
  15. DOPAMINE HCL [Concomitant]
     Indication: PRODUCT USED FOR UNKNOWN INDICATION
     Dosage: 2.2 MCG/KG/MIN
     Route: 042
     Dates: start: 20040516, end: 20040517
  16. NESIRITIDE [Concomitant]
     Indication: PRODUCT USED FOR UNKNOWN INDICATION
     Dosage: 2.9 ML/HOUR
     Route: 042
     Dates: start: 20040516, end: 20040517
  17. COUMADIN [Concomitant]
     Indication: PRODUCT USED FOR UNKNOWN INDICATION
     Dosage: 5 MG, QD
     Route: 048
     Dates: start: 20030101, end: 20030101
  18. PLATELETS [Concomitant]
     Dosage: 1500 ML, UNK
     Route: 042
     Dates: start: 20040516
  19. LISINOPRIL [Concomitant]
     Indication: PRODUCT USED FOR UNKNOWN INDICATION
     Dosage: UNK
     Route: 048
     Dates: end: 20040101
  20. FENTANYL [Concomitant]
     Indication: PRODUCT USED FOR UNKNOWN INDICATION
     Dosage: 750 MCG
     Route: 042
     Dates: start: 20040516, end: 20040517
  21. CONTRAST MEDIA [Concomitant]
     Indication: CATHETERISATION CARDIAC
  22. CONTRAST MEDIA [Concomitant]
     Indication: POSITRON EMISSION TOMOGRAM NORMAL
     Dosage: UNK
     Dates: start: 20040420
  23. CEFOTAXIME [Concomitant]
     Indication: PRODUCT USED FOR UNKNOWN INDICATION
     Dosage: 1 G, UNK
     Route: 042
     Dates: start: 20040516, end: 20040517

REACTIONS (11)
  - RENAL IMPAIRMENT [None]
  - ANHEDONIA [None]
  - RENAL FAILURE [None]
  - RENAL INJURY [None]
  - EMOTIONAL DISTRESS [None]
  - INJURY [None]
  - STRESS [None]
  - PAIN [None]
  - FEAR [None]
  - ANXIETY [None]
  - UNEVALUABLE EVENT [None]
